FAERS Safety Report 6203508-1 (Version None)
Quarter: 2009Q2

REPORT INFORMATION
  Report Type: 
  Country: None (occurrence: None)
  Receive Date: 20090527
  Receipt Date: 20090518
  Transmission Date: 20091009
  Serious: Yes (Hospitalization)
  Sender: FDA-Public Use
  Company Number: PHHY2009DE12227

PATIENT
  Sex: Male

DRUGS (15)
  1. CERTICAN [Suspect]
     Indication: HEART TRANSPLANT
     Dosage: 1.0 MG MORNING, 0.75 MG EVENING
     Route: 048
     Dates: start: 20080401, end: 20090401
  2. CELLCEPT [Concomitant]
     Indication: HEART TRANSPLANT
     Dosage: 750 MG/DAY
  3. PENTALONG [Concomitant]
  4. BELOC ZOK [Concomitant]
     Dosage: UNK
  5. ASPIRIN [Concomitant]
  6. RASILEZ [Concomitant]
  7. RAMIPRIL [Concomitant]
  8. UNAT [Concomitant]
  9. LOCOL [Concomitant]
  10. NIASPAN [Concomitant]
  11. AMARYL [Concomitant]
     Dosage: 2 MG
  12. METFORMIN HCL [Concomitant]
  13. ALLOPURINOL [Concomitant]
     Dosage: 100
  14. PANTOZOL [Concomitant]
  15. ACIC [Concomitant]

REACTIONS (21)
  - ALVEOLITIS [None]
  - BLOOD LACTATE DEHYDROGENASE INCREASED [None]
  - BLOOD POTASSIUM INCREASED [None]
  - BLOOD TRIGLYCERIDES INCREASED [None]
  - BLOOD UREA INCREASED [None]
  - BRAIN NATRIURETIC PEPTIDE INCREASED [None]
  - BRONCHOPNEUMONIA [None]
  - C-REACTIVE PROTEIN INCREASED [None]
  - DYSPHONIA [None]
  - DYSPNOEA [None]
  - DYSPNOEA EXERTIONAL [None]
  - EXERCISE TOLERANCE DECREASED [None]
  - HAEMATOCRIT DECREASED [None]
  - HAEMOGLOBIN DECREASED [None]
  - MEAN CELL HAEMOGLOBIN DECREASED [None]
  - MEAN CELL VOLUME ABNORMAL [None]
  - PNEUMONITIS [None]
  - PRODUCTIVE COUGH [None]
  - PYREXIA [None]
  - RELAPSING FEVER [None]
  - WEIGHT DECREASED [None]
